FAERS Safety Report 14110817 (Version 1)
Quarter: 2017Q4

REPORT INFORMATION
  Report Type: Spontaneous
  Country: DE (occurrence: DE)
  Receive Date: 20171020
  Receipt Date: 20171020
  Transmission Date: 20180321
  Serious: Yes (Congenital Anomaly, Other)
  Sender: FDA-Public Use
  Company Number: DE-AUROBINDO-AUR-APL-2017-42243

PATIENT
  Age: 1 Day
  Sex: Male
  Weight: 3.53 kg

DRUGS (4)
  1. QUETIAPINE 300MG [Suspect]
     Active Substance: QUETIAPINE
     Indication: BIPOLAR DISORDER
     Dosage: 300 MG, DAILY
     Route: 064
     Dates: start: 20160313, end: 20161203
  2. ACTRAPID [Concomitant]
     Active Substance: INSULIN HUMAN
     Indication: GESTATIONAL DIABETES
     Dosage: 14 IE/D
     Route: 064
     Dates: start: 20161026, end: 20161203
  3. PROTAPHANE [Concomitant]
     Active Substance: INSULIN HUMAN
     Indication: GESTATIONAL DIABETES
     Dosage: 4 IE/D
     Route: 064
     Dates: start: 20161026, end: 20161203
  4. FOLSAEURE [Concomitant]
     Active Substance: FOLIC ACID
     Indication: PROPHYLAXIS OF NEURAL TUBE DEFECT
     Dosage: UNK
     Route: 064
     Dates: start: 20160313, end: 20161203

REACTIONS (2)
  - Pyelocaliectasis [Unknown]
  - Drug withdrawal syndrome neonatal [Recovered/Resolved]

NARRATIVE: CASE EVENT DATE: 20161203
